FAERS Safety Report 15723184 (Version 3)
Quarter: 2019Q1

REPORT INFORMATION
  Report Type: Spontaneous
  Country: US (occurrence: US)
  Receive Date: 20181214
  Receipt Date: 20190212
  Transmission Date: 20190417
  Serious: No
  Sender: FDA-Public Use
  Company Number: US-009507513-1812USA002295

PATIENT
  Age: 84 Year
  Sex: Female

DRUGS (3)
  1. PROVENTIL [Suspect]
     Active Substance: ALBUTEROL
     Indication: ASTHMA
     Dosage: UNKNOWN DOSE, AS NEEDED
     Route: 055
     Dates: start: 201810
  2. PROVENTIL [Suspect]
     Active Substance: ALBUTEROL
     Dosage: UNKNOWN DOSE, AS NEEDEDUNK
     Route: 055
  3. ADVAIR HFA [Concomitant]
     Active Substance: FLUTICASONE PROPIONATE\SALMETEROL XINAFOATE
     Dosage: UNK

REACTIONS (3)
  - Product quality issue [Recovered/Resolved]
  - Product use complaint [Unknown]
  - Bronchitis [Recovered/Resolved]

NARRATIVE: CASE EVENT DATE: 201810
